FAERS Safety Report 8295848-X (Version None)
Quarter: 2012Q2

REPORT INFORMATION
  Report Type: 
  Country: None (occurrence: None)
  Receive Date: 20120417
  Receipt Date: 20120417
  Transmission Date: 20120825
  Serious: Yes (Hospitalization)
  Sender: FDA-Public Use
  Company Number: None

PATIENT
  Age: 80 Year
  Sex: Male
  Weight: 75.6 kg

DRUGS (1)
  1. DOXYCYCLINE [Suspect]
     Indication: UPPER RESPIRATORY TRACT INFECTION
     Dosage: 100 MG EVERY DAY PO
     Route: 048
     Dates: start: 20120301, end: 20120304

REACTIONS (2)
  - RASH ERYTHEMATOUS [None]
  - PURPURA [None]
